FAERS Safety Report 5600141-7 (Version None)
Quarter: 2008Q1

REPORT INFORMATION
  Report Type: 
  Country: None (occurrence: None)
  Receive Date: 20080123
  Receipt Date: 20080118
  Transmission Date: 20080703
  Serious: Yes (Hospitalization)
  Sender: FDA-Public Use
  Company Number: B0504672A

PATIENT
  Age: 70 Year
  Sex: Male

DRUGS (2)
  1. CIBLOR [Suspect]
     Indication: DRUG USE FOR UNKNOWN INDICATION
     Dosage: 1SAC PER DAY
     Route: 048
     Dates: start: 20071116, end: 20071116
  2. TAMSULOSIN HCL [Suspect]
     Route: 048
     Dates: start: 20071109, end: 20071116

REACTIONS (11)
  - DYSPHAGIA [None]
  - DYSURIA [None]
  - GENITAL ULCERATION [None]
  - GINGIVAL ULCERATION [None]
  - HYPERTHERMIA [None]
  - MOUTH ULCERATION [None]
  - MUCOCUTANEOUS RASH [None]
  - PENILE ULCERATION [None]
  - PRURIGO [None]
  - RASH [None]
  - RASH MACULO-PAPULAR [None]
